FAERS Safety Report 4496075-4 (Version None)
Quarter: 2004Q4

REPORT INFORMATION
  Report Type: 
  Country: None (occurrence: None)
  Receive Date: 20041108
  Receipt Date: 20041008
  Transmission Date: 20050328
  Serious: Yes (Life-Threatening, Hospitalization, Disabling, Other)
  Sender: FDA-Public Use
  Company Number: US-MERCK-0410USA01356

PATIENT
  Age: 68 Year
  Sex: Male
  Weight: 85 kg

DRUGS (5)
  1. VIOXX [Suspect]
     Indication: PSORIATIC ARTHROPATHY
     Route: 048
     Dates: start: 19990601, end: 20040930
  2. ULTRAM [Concomitant]
     Route: 048
  3. NEXIUM [Concomitant]
     Indication: GASTROOESOPHAGEAL REFLUX DISEASE
     Route: 048
  4. ZANAFLEX [Concomitant]
     Indication: ARTHRITIS
     Route: 048
  5. AMBIEN [Concomitant]
     Indication: INSOMNIA
     Route: 048

REACTIONS (13)
  - ARTHROPATHY [None]
  - CONFUSIONAL STATE [None]
  - DIVERTICULUM [None]
  - EMBOLIC STROKE [None]
  - GASTROENTERITIS [None]
  - HEADACHE [None]
  - HYPERLIPIDAEMIA [None]
  - HYPERTHYROIDISM [None]
  - MEMORY IMPAIRMENT [None]
  - PERIPHERAL VASCULAR DISORDER [None]
  - ROTATOR CUFF SYNDROME [None]
  - SYNCOPE [None]
  - UPPER RESPIRATORY TRACT INFECTION [None]
